FAERS Safety Report 9733897 (Version 1)
Quarter: 2013Q4

REPORT INFORMATION
  Report Type: Spontaneous
  Country: FR (occurrence: FR)
  Receive Date: 20131205
  Receipt Date: 20131205
  Transmission Date: 20140711
  Serious: Yes (Life-Threatening)
  Sender: FDA-Public Use
  Company Number: FR-LUNDBECK-DKLU1095800

PATIENT
  Age: 74 Year
  Sex: Male

DRUGS (6)
  1. ONFI [Suspect]
     Indication: IMMUNISATION
     Route: 048
  2. REPEVAX [Suspect]
     Indication: IMMUNISATION
     Dates: start: 20121205, end: 20121205
  3. PREVISCAN [Concomitant]
     Indication: PRODUCT USED FOR UNKNOWN INDICATION
  4. ZESTRIL [Concomitant]
     Indication: PRODUCT USED FOR UNKNOWN INDICATION
  5. SECTRAL [Concomitant]
     Indication: PRODUCT USED FOR UNKNOWN INDICATION
  6. TANAKAN [Concomitant]
     Indication: PRODUCT USED FOR UNKNOWN INDICATION

REACTIONS (1)
  - Guillain-Barre syndrome [Recovered/Resolved]
